FAERS Safety Report 6964083-7 (Version None)
Quarter: 2010Q3

REPORT INFORMATION
  Report Type: 
  Country: None (occurrence: None)
  Receive Date: 20100831
  Receipt Date: 20100819
  Transmission Date: 20110219
  Serious: Yes (Hospitalization)
  Sender: FDA-Public Use
  Company Number: TCI2010A03334

PATIENT
  Sex: Male

DRUGS (2)
  1. ACTOS [Suspect]
     Indication: TYPE 2 DIABETES MELLITUS
     Dosage: (1 IN 1 D), PER ORAL
     Route: 048
  2. MP-513 (CODE NOT BROKEN) (ORAL ANTIDIABETICS) [Suspect]
     Indication: TYPE 2 DIABETES MELLITUS
     Dosage: MP-513 OR PLACEBO (1 IN 1 D), PER ORAL
     Route: 048
     Dates: start: 20100227, end: 20100521

REACTIONS (2)
  - COLONIC POLYP [None]
  - HAEMORRHAGE [None]
